FAERS Safety Report 8190021-8 (Version None)
Quarter: 2012Q1

REPORT INFORMATION
  Report Type: 
  Country: None (occurrence: None)
  Receive Date: 20120221
  Receipt Date: 20120109
  Transmission Date: 20120608
  Serious: No
  Sender: FDA-Public Use
  Company Number: 1000026868

PATIENT
  Age: 30 Year
  Sex: Female

DRUGS (4)
  1. VIIBRYD [Suspect]
     Indication: MAJOR DEPRESSION
     Dosage: 40 MG (40 MG, 1 IN 1 D)
     Dates: end: 20120101
  2. VIIBRYD [Suspect]
     Indication: MAJOR DEPRESSION
     Dosage: 40 MG (40 MG, 1 IN 1 D)
     Dates: start: 20120101
  3. VIIBRYD [Suspect]
     Indication: MAJOR DEPRESSION
     Dosage: 10 MG (10 MG, 1 IN 1 D); 20 MG (20 MG, 1 IN 1 D)
  4. VIIBRYD [Suspect]
     Indication: MAJOR DEPRESSION
     Dosage: 10 MG (10 MG, 1 IN 1 D); 20 MG (20 MG, 1 IN 1 D)
     Dates: start: 20110101

REACTIONS (1)
  - WITHDRAWAL SYNDROME [None]
